FAERS Safety Report 5218414-9 (Version None)
Quarter: 2007Q1

REPORT INFORMATION
  Report Type: 
  Country: None (occurrence: None)
  Receive Date: 20061201
  Receipt Date: 20060615
  Transmission Date: 20070707
  Serious: Yes (Disabling)
  Sender: FDA-Public Use
  Company Number: PHEH2006US07857

PATIENT
  Age: 64 Year
  Sex: Female

DRUGS (1)
  1. LAMISIL [Suspect]
     Dosage: 250 MG, QD, ORAL
     Route: 048

REACTIONS (2)
  - ARTHRALGIA [None]
  - RASH [None]
